FAERS Safety Report 7849893-6 (Version None)
Quarter: 2011Q4

REPORT INFORMATION
  Report Type: 
  Country: None (occurrence: None)
  Receive Date: 20111025
  Receipt Date: 20111025
  Transmission Date: 20120403
  Serious: Yes (Hospitalization)
  Sender: FDA-Public Use
  Company Number: None

PATIENT
  Sex: Male
  Weight: 85 kg

DRUGS (3)
  1. LEXAPRO [Concomitant]
  2. TYLENOL-500 [Concomitant]
  3. CISPLATIN [Suspect]
     Dosage: 200 MG
     Dates: end: 20070820

REACTIONS (10)
  - SINUS CONGESTION [None]
  - DEHYDRATION [None]
  - THROMBOCYTOPENIA [None]
  - PLATELET COUNT DECREASED [None]
  - STOMATITIS [None]
  - COUGH [None]
  - BLOOD MAGNESIUM DECREASED [None]
  - INFLUENZA [None]
  - PYREXIA [None]
  - LOBAR PNEUMONIA [None]
